FAERS Safety Report 7252456-7 (Version None)
Quarter: 2011Q1

REPORT INFORMATION
  Report Type: 
  Country: None (occurrence: None)
  Receive Date: 20110129
  Receipt Date: 20100216
  Transmission Date: 20110831
  Serious: No
  Sender: FDA-Public Use
  Company Number: US-ABBOTT-10P-163-0620387-00

PATIENT
  Sex: Female
  Weight: 56.75 kg

DRUGS (2)
  1. HUMIRA [Suspect]
     Dates: start: 20100215
  2. HUMIRA [Suspect]
     Indication: CROHN'S DISEASE
     Dosage: DAY 1
     Dates: start: 20100105, end: 20100107

REACTIONS (4)
  - NASOPHARYNGITIS [None]
  - CROHN'S DISEASE [None]
  - UPPER-AIRWAY COUGH SYNDROME [None]
  - EAR PAIN [None]
